FAERS Safety Report 13084055 (Version 1)
Quarter: 2017Q1

REPORT INFORMATION
  Report Type: Spontaneous
  Country: US (occurrence: US)
  Receive Date: 20170104
  Receipt Date: 20170104
  Transmission Date: 20170428
  Serious: No
  Sender: FDA-Public Use
  Company Number: US-009507513-1612USA009359

PATIENT

DRUGS (5)
  1. PERCOCET [Concomitant]
     Active Substance: ACETAMINOPHEN\OXYCODONE HYDROCHLORIDE
     Dosage: 10-320 M
     Dates: start: 20161108
  2. METOCLOPRAMIDE. [Concomitant]
     Active Substance: METOCLOPRAMIDE
     Dosage: UNK
     Dates: start: 20161108
  3. PRINIVIL [Concomitant]
     Active Substance: LISINOPRIL
     Indication: HEPATITIS C
     Dosage: 20-12.5/ QD
     Dates: start: 20161108
  4. OMEPRAZOLE. [Concomitant]
     Active Substance: OMEPRAZOLE
     Dosage: 20 MG, QD
     Dates: start: 20161108
  5. ZEPATIER [Suspect]
     Active Substance: ELBASVIR\GRAZOPREVIR
     Indication: HEPATITIS C
     Dosage: 1 TABLET EVERY DAY
     Route: 048

REACTIONS (3)
  - Headache [Unknown]
  - Emotional disorder [Unknown]
  - Fatigue [Unknown]
